FAERS Safety Report 5173608-6 (Version None)
Quarter: 2006Q4

REPORT INFORMATION
  Report Type: 
  Country: None (occurrence: None)
  Receive Date: 20061207
  Receipt Date: 20061207
  Transmission Date: 20070319
  Serious: Yes (Hospitalization)
  Sender: FDA-Public Use
  Company Number: None

PATIENT
  Sex: Male
  Weight: 88.18 kg

DRUGS (6)
  1. CYCLOPHOSPHAMIDE [Suspect]
     Dosage: 1272 MG
  2. DOXORUBICIN HYDROCHLORIDE [Suspect]
     Dosage: 84 MG
  3. ETOPOSIDE [Suspect]
     Dosage: 424 MG
  4. PREDNISONE TAB [Suspect]
     Dosage: 2400 MG
  5. RITUXIMAB (MOAB C2B8 ANTICD20, CHIMERIC) [Suspect]
     Dosage: 795 MG
  6. VINCRISTINE SULFATE [Suspect]
     Dosage: 3.4 MG

REACTIONS (2)
  - DEHYDRATION [None]
  - FEBRILE NEUTROPENIA [None]
